FAERS Safety Report 15454079 (Version 7)
Quarter: 2024Q3

REPORT INFORMATION
  Report Type: Report from Study
  Country: US (occurrence: US)
  Receive Date: 20181002
  Receipt Date: 20240810
  Transmission Date: 20241016
  Serious: Yes (Other)
  Sender: TAKEDA
  Company Number: US-TAKEDA-2018TUS028397

PATIENT
  Age: 62 Year
  Sex: Male
  Weight: 74 kg

DRUGS (5)
  1. PONATINIB [Suspect]
     Active Substance: PONATINIB
     Indication: Acute lymphocytic leukaemia
     Dosage: 15 MILLIGRAM
     Route: 048
     Dates: start: 201401
  2. PONATINIB [Suspect]
     Active Substance: PONATINIB
     Indication: Chronic myeloid leukaemia
     Dosage: 15 MILLIGRAM
     Route: 048
  3. TAMSULOSIN HYDROCHLORIDE [Concomitant]
     Active Substance: TAMSULOSIN HYDROCHLORIDE
     Dosage: UNK
     Route: 065
  4. TOLTERODINE TARTRATE [Concomitant]
     Active Substance: TOLTERODINE TARTRATE
     Dosage: UNK
     Route: 065
  5. FINASTERIDE [Concomitant]
     Active Substance: FINASTERIDE
     Dosage: UNK
     Route: 065

REACTIONS (14)
  - Urinary retention [Unknown]
  - Basal cell carcinoma [Unknown]
  - Eye disorder [Unknown]
  - Prostatic disorder [Unknown]
  - Stress [Unknown]
  - Drug intolerance [Unknown]
  - Off label use [Unknown]
  - Pain [Unknown]
  - Fatigue [Unknown]
  - White blood cell count decreased [Unknown]
  - Platelet count decreased [Unknown]
  - Vision blurred [Unknown]
  - Asthenia [Unknown]
  - Rash [Unknown]

NARRATIVE: CASE EVENT DATE: 20140101
